FAERS Safety Report 21564628 (Version 2)
Quarter: 2023Q4

REPORT INFORMATION
  Report Type: Spontaneous
  Country: US (occurrence: US)
  Receive Date: 20221108
  Receipt Date: 20231101
  Transmission Date: 20240110
  Serious: No
  Sender: FDA-Public Use
  Company Number: US-BIOGEN-2022BI01167083

PATIENT
  Sex: Male

DRUGS (1)
  1. VUMERITY [Suspect]
     Active Substance: DIROXIMEL FUMARATE
     Indication: Multiple sclerosis
     Dosage: RECEIVED FIRST SHIPMENT 10/20/2022
     Route: 050
     Dates: start: 20221106

REACTIONS (3)
  - Hypoacusis [Unknown]
  - Visual acuity reduced [Not Recovered/Not Resolved]
  - Intentional product misuse [Unknown]
